FAERS Safety Report 6721990-8 (Version None)
Quarter: 2010Q2

REPORT INFORMATION
  Report Type: 
  Country: None (occurrence: None)
  Receive Date: 20100512
  Receipt Date: 20100504
  Transmission Date: 20101027
  Serious: Yes (Congenital Anomaly, Other)
  Sender: FDA-Public Use
  Company Number: B0651356A

PATIENT
  Sex: Female

DRUGS (3)
  1. COMBIVIR [Suspect]
     Indication: HIV INFECTION
     Dosage: 1TAB TWICE PER DAY
  2. KALETRA [Suspect]
     Dosage: 6TAB PER DAY
  3. VIRACEPT [Suspect]
     Dosage: 2TAB PER DAY

REACTIONS (4)
  - CONGESTIVE CARDIOMYOPATHY [None]
  - DRUG EXPOSURE DURING PREGNANCY [None]
  - HEART BLOCK CONGENITAL [None]
  - PREMATURE BABY [None]
